FAERS Safety Report 10788296 (Version 1)
Quarter: 2015Q1

REPORT INFORMATION
  Report Type: Spontaneous
  Country: DE (occurrence: DE)
  Receive Date: 20150212
  Receipt Date: 20150212
  Transmission Date: 20150721
  Serious: Yes (Death)
  Sender: FDA-Public Use
  Company Number: DE-DRREDDYS-GER/GER/12/0026261

PATIENT
  Age: 83 Year
  Sex: Female
  Weight: 59 kg

DRUGS (19)
  1. CLOPIDOGREL [Suspect]
     Active Substance: CLOPIDOGREL BISULFATE
     Indication: STENT PLACEMENT
     Route: 048
     Dates: start: 20120418, end: 20120510
  2. METHIZOL 5 [Concomitant]
     Indication: PRODUCT USED FOR UNKNOWN INDICATION
     Route: 048
     Dates: end: 20120326
  3. PANTOPRAZOLE [Concomitant]
     Active Substance: PANTOPRAZOLE SODIUM
     Indication: GASTRITIS PROPHYLAXIS
     Route: 048
     Dates: start: 20120403, end: 20120430
  4. DIGITOXIN 0,07 [Concomitant]
     Indication: HEART RATE
     Route: 048
     Dates: start: 20120426, end: 20120529
  5. HCT 12,5 MG [Concomitant]
     Route: 048
     Dates: start: 20120406, end: 20120425
  6. COLCHYSAT TRPF [Concomitant]
     Indication: GOUT
     Dates: start: 20120409, end: 20120415
  7. OMEBETA 20 [Concomitant]
     Indication: PRODUCT USED FOR UNKNOWN INDICATION
     Route: 048
  8. TORASEMIDE [Concomitant]
     Active Substance: TORSEMIDE
     Indication: PRODUCT USED FOR UNKNOWN INDICATION
     Dosage: 1-0-1/2
     Route: 048
     Dates: end: 20120524
  9. SIMVASTATIN. [Concomitant]
     Active Substance: SIMVASTATIN
     Indication: PRODUCT USED FOR UNKNOWN INDICATION
     Route: 048
     Dates: end: 20120430
  10. PRASUGREL [Concomitant]
     Active Substance: PRASUGREL
     Indication: CORONARY ARTERY DISEASE
     Route: 048
     Dates: start: 20120511, end: 20120513
  11. ALLOPURINOL. [Concomitant]
     Active Substance: ALLOPURINOL
     Indication: HYPERURICAEMIA
     Dates: start: 20120416, end: 20120430
  12. FERRO SANOL [Concomitant]
     Active Substance: FERROUS SULFATE\GLYCINE
     Indication: ANAEMIA
     Route: 048
     Dates: start: 20120329, end: 20120430
  13. HCT 12,5 MG [Concomitant]
     Indication: CARDIAC FAILURE
     Route: 048
     Dates: start: 20120402, end: 20120405
  14. ENALAPRIL [Concomitant]
     Active Substance: ENALAPRIL
     Indication: CARDIAC FAILURE
     Route: 048
     Dates: start: 20120326, end: 20120430
  15. IBUPROFEN. [Concomitant]
     Active Substance: IBUPROFEN
     Indication: PAIN
     Route: 048
     Dates: start: 20120402, end: 20120416
  16. ASS PROTECT 100 [Concomitant]
     Indication: PRODUCT USED FOR UNKNOWN INDICATION
     Route: 048
  17. TRAMADOLOR [Concomitant]
     Active Substance: TRAMADOL
     Indication: PRODUCT USED FOR UNKNOWN INDICATION
     Route: 048
  18. ZOPICLONE [Concomitant]
     Active Substance: ZOPICLONE
     Indication: SLEEP DISORDER
     Route: 048
     Dates: start: 20120423, end: 20120430
  19. METOPROLOL 100 MG [Concomitant]
     Indication: PRODUCT USED FOR UNKNOWN INDICATION
     Route: 048
     Dates: end: 20120525

REACTIONS (2)
  - Hyperbilirubinaemia [Fatal]
  - Drug-induced liver injury [Fatal]

NARRATIVE: CASE EVENT DATE: 20120427
